FAERS Safety Report 17166828 (Version 1)
Quarter: 2019Q4

REPORT INFORMATION
  Report Type: Report from Study
  Country: CA (occurrence: CA)
  Receive Date: 20191217
  Receipt Date: 20191217
  Transmission Date: 20200122
  Serious: Yes (Other)
  Sender: FDA-Public Use
  Company Number: CA-NALPROPION PHARMACEUTICALS INC.-2019-009081

PATIENT

DRUGS (7)
  1. CONTRAVE [Suspect]
     Active Substance: BUPROPION HYDROCHLORIDE\NALTREXONE HYDROCHLORIDE
     Dosage: 90 MG/ 8 MG, TWO TABLETS IN THE MORNING AND ONE TABLET IN THE EVENING
     Route: 048
     Dates: start: 20190921, end: 20190927
  2. CONTRAVE [Suspect]
     Active Substance: BUPROPION HYDROCHLORIDE\NALTREXONE HYDROCHLORIDE
     Dosage: 90 MG/ 8 MG, TWO TABLETS IN THE MORNING AND TWO TABLETS IN THE EVENING
     Route: 048
     Dates: start: 20190928, end: 20190929
  3. CONTRAVE [Suspect]
     Active Substance: BUPROPION HYDROCHLORIDE\NALTREXONE HYDROCHLORIDE
     Indication: WEIGHT CONTROL
     Dosage: FIRST ATTEMPT, 90 MG/ 8 MG, ONE TABLET ONCE DAILY
     Route: 048
     Dates: start: 20190907, end: 20190913
  4. CONTRAVE [Suspect]
     Active Substance: BUPROPION HYDROCHLORIDE\NALTREXONE HYDROCHLORIDE
     Dosage: 90 MG/ 8 MG
     Route: 048
     Dates: start: 20190914, end: 20190920
  5. CONTRAVE [Suspect]
     Active Substance: BUPROPION HYDROCHLORIDE\NALTREXONE HYDROCHLORIDE
     Dosage: 90 MG/ 8 MG
     Route: 048
     Dates: start: 20191121, end: 20191127
  6. CONTRAVE [Suspect]
     Active Substance: BUPROPION HYDROCHLORIDE\NALTREXONE HYDROCHLORIDE
     Dosage: SECOND ATTEMPT, 90 MG/ 8 MG
     Route: 048
     Dates: start: 20191114, end: 20191120
  7. CONTRAVE [Suspect]
     Active Substance: BUPROPION HYDROCHLORIDE\NALTREXONE HYDROCHLORIDE
     Dosage: 90 MG/ 8 MG, TWO TABLETS IN THE MORNING AND 1 TABLET IN THE EVENING
     Route: 048
     Dates: start: 20191128

REACTIONS (2)
  - Patient dissatisfaction with treatment [Unknown]
  - Pneumonia [Unknown]

NARRATIVE: CASE EVENT DATE: 201909
